FAERS Safety Report 16588860 (Version 2)
Quarter: 2019Q3

REPORT INFORMATION
  Report Type: Spontaneous
  Country: NL (occurrence: NL)
  Receive Date: 20190718
  Receipt Date: 20190718
  Transmission Date: 20191004
  Serious: Yes (Other)
  Sender: FDA-Public Use
  Company Number: NL-ALK-ABELLO A/S-2019AA002514

PATIENT

DRUGS (2)
  1. ACARIZAX 12 SQ-HDM [Suspect]
     Active Substance: DERMATOPHAGOIDES FARINAE\DERMATOPHAGOIDES PTERONYSSINUS
     Indication: MITE ALLERGY
  2. GRAZAX [Suspect]
     Active Substance: PHLEUM PRATENSE POLLEN
     Indication: SEASONAL ALLERGY

REACTIONS (3)
  - Hepatic enzyme increased [Unknown]
  - Rash pruritic [Unknown]
  - Otitis externa [Unknown]

NARRATIVE: CASE EVENT DATE: 20190607
